FAERS Safety Report 9862482 (Version 1)
Quarter: 2014Q1

REPORT INFORMATION
  Report Type: Spontaneous
  Country: US (occurrence: US)
  Receive Date: 20140203
  Receipt Date: 20140203
  Transmission Date: 20141002
  Serious: No
  Sender: FDA-Public Use
  Company Number: US-BAYER-2014-016741

PATIENT
  Age: 67 Year
  Sex: Female
  Weight: 88.44 kg

DRUGS (4)
  1. ALEVE CAPLET [Suspect]
     Indication: BACK PAIN
     Dosage: 1 DF, PRN
     Route: 048
     Dates: start: 1994
  2. ALEVE CAPLET [Suspect]
     Indication: BACK PAIN
     Dosage: 2 DF, QD
     Dates: start: 2012
  3. ONE A DAY WOMEN^S 50+ HEALTHY ADVANTAGE [Concomitant]
     Route: 048
  4. SYNTHROID [Concomitant]

REACTIONS (1)
  - Incorrect drug administration duration [None]
